FAERS Safety Report 12088804 (Version 1)
Quarter: 2016Q1

REPORT INFORMATION
  Report Type: Spontaneous
  Country: US (occurrence: US)
  Receive Date: 20160218
  Receipt Date: 20160218
  Transmission Date: 20160526
  Serious: No
  Sender: FDA-Public Use
  Company Number: US-009507513-1602USA007121

PATIENT
  Sex: Female

DRUGS (2)
  1. MEVACOR [Suspect]
     Active Substance: LOVASTATIN
     Dosage: UNK
     Route: 048
     Dates: start: 201302
  2. VITAMIN D [Concomitant]
     Active Substance: CHOLECALCIFEROL
     Dosage: UNK

REACTIONS (1)
  - Muscle spasms [Unknown]
